FAERS Safety Report 5755174-7 (Version None)
Quarter: 2008Q2

REPORT INFORMATION
  Report Type: 
  Country: None (occurrence: None)
  Receive Date: 20080528
  Receipt Date: 20080520
  Transmission Date: 20081010
  Serious: Yes (Death, Other)
  Sender: FDA-Public Use
  Company Number: 163-20785-08040481

PATIENT
  Age: 62 Year
  Sex: Male

DRUGS (1)
  1. THALOMID [Suspect]
     Indication: MULTIPLE MYELOMA
     Dosage: 100 MG, QHS, ORAL
     Route: 048

REACTIONS (2)
  - CEREBRAL HAEMORRHAGE TRAUMATIC [None]
  - FALL [None]
